FAERS Safety Report 12026702 (Version 1)
Quarter: 2016Q1

REPORT INFORMATION
  Report Type: Report from Study
  Country: US (occurrence: US)
  Receive Date: 20160206
  Receipt Date: 20160206
  Transmission Date: 20160526
  Serious: No
  Sender: FDA-Public Use
  Company Number: US-ABBVIE-15K-163-1487902-00

PATIENT
  Age: 33 Year
  Sex: Male
  Weight: 63.56 kg

DRUGS (5)
  1. HUMIRA [Suspect]
     Active Substance: ADALIMUMAB
     Indication: CROHN^S DISEASE
     Dosage: LOADING DOSE
     Route: 058
     Dates: start: 201507, end: 201507
  2. HUMIRA [Suspect]
     Active Substance: ADALIMUMAB
     Dosage: 2 WEEKS AFTER 80MG DOSE
     Route: 058
     Dates: start: 2015
  3. HUMIRA [Suspect]
     Active Substance: ADALIMUMAB
     Dosage: 2 WEEKS AFTER 160MG DOSE
     Route: 058
     Dates: start: 2015, end: 2015
  4. AZATHIOPRINE. [Suspect]
     Active Substance: AZATHIOPRINE
     Indication: CROHN^S DISEASE
     Route: 065
  5. VITAMIN D [Concomitant]
     Active Substance: CHOLECALCIFEROL
     Indication: PRODUCT USED FOR UNKNOWN INDICATION

REACTIONS (9)
  - Mass [Recovering/Resolving]
  - Musculoskeletal pain [Recovering/Resolving]
  - Mass [Recovered/Resolved]
  - Pain [Recovering/Resolving]
  - Local swelling [Recovering/Resolving]
  - Wrong technique in product usage process [Unknown]
  - Chest pain [Recovered/Resolved]
  - Abasia [Recovered/Resolved]
  - Purulent discharge [Recovering/Resolving]

NARRATIVE: CASE EVENT DATE: 20150927
